FAERS Safety Report 24717068 (Version 4)
Quarter: 2025Q2

REPORT INFORMATION
  Report Type: Spontaneous
  Country: TH (occurrence: TH)
  Receive Date: 20241210
  Receipt Date: 20250630
  Transmission Date: 20250717
  Serious: No
  Sender: NOVARTIS
  Company Number: TH-002147023-NVSC2024TH228827

PATIENT
  Age: 52 Year
  Sex: Male

DRUGS (3)
  1. ENTRESTO [Suspect]
     Active Substance: SACUBITRIL\VALSARTAN
     Indication: Heart failure with reduced ejection fraction
     Dosage: 24/26MG, BID
     Route: 065
     Dates: start: 202001
  2. ENTRESTO [Suspect]
     Active Substance: SACUBITRIL\VALSARTAN
     Dosage: 49/51MG, BID
     Route: 065
     Dates: start: 202101
  3. ENTRESTO [Suspect]
     Active Substance: SACUBITRIL\VALSARTAN
     Dosage: 97/103MG BID
     Route: 065
     Dates: start: 202101

REACTIONS (3)
  - Hypokinesia [Unknown]
  - N-terminal prohormone brain natriuretic peptide [Unknown]
  - Off label use [Unknown]
